FAERS Safety Report 10257603 (Version 1)
Quarter: 2014Q2

REPORT INFORMATION
  Report Type: Spontaneous
  Country: US (occurrence: None)
  Receive Date: 20140623
  Receipt Date: 20140623
  Transmission Date: 20141212
  Serious: Yes (Hospitalization)
  Sender: FDA-Public Use
  Company Number: None

PATIENT
  Age: 66 Year
  Sex: Male
  Weight: 87.2 kg

DRUGS (2)
  1. CLOPIDOGREL [Suspect]
     Indication: ATRIAL FIBRILLATION
     Dosage: MG  PO
     Route: 048
     Dates: start: 20140412
  2. WARFARIN [Suspect]
     Dosage: MG   PO
     Route: 048
     Dates: start: 20110225, end: 20140612

REACTIONS (7)
  - Renal failure acute [None]
  - Dehydration [None]
  - Hypotension [None]
  - Gastrointestinal haemorrhage [None]
  - Diverticulum [None]
  - Anaemia [None]
  - Haemorrhage [None]
